FAERS Safety Report 13536706 (Version 2)
Quarter: 2017Q2

REPORT INFORMATION
  Report Type: Spontaneous
  Country: JP (occurrence: JP)
  Receive Date: 20170511
  Receipt Date: 20170525
  Transmission Date: 20170830
  Serious: Yes (Other)
  Sender: FDA-Public Use
  Company Number: JP-AMGEN-JPNSP2017071343

PATIENT
  Age: 86 Year
  Sex: Female

DRUGS (11)
  1. FEBURIC [Concomitant]
     Active Substance: FEBUXOSTAT
     Dosage: 20 MG, QD
     Route: 048
  2. DIART [Concomitant]
     Active Substance: AZOSEMIDE
     Dosage: 30 MG, BID
     Route: 048
  3. PARIET [Concomitant]
     Active Substance: RABEPRAZOLE SODIUM
     Dosage: 10 MG, QD
     Route: 048
  4. LANIRAPID [Concomitant]
     Active Substance: METILDIGOXIN
     Dosage: 0.05 MG, QD
     Route: 048
  5. PRALIA [Suspect]
     Active Substance: DENOSUMAB
     Indication: PRODUCT USED FOR UNKNOWN INDICATION
     Dosage: 60 MG, Q6MO
     Route: 058
     Dates: start: 20170419
  6. DIGOXIN. [Suspect]
     Active Substance: DIGOXIN
     Indication: PRODUCT USED FOR UNKNOWN INDICATION
     Dosage: UNK
     Route: 065
  7. PIMOBENDAN [Concomitant]
     Active Substance: PIMOBENDAN
     Dosage: 1.25 MG, BID
     Route: 048
  8. FLUITRAN [Concomitant]
     Active Substance: TRICHLORMETHIAZIDE
     Dosage: 0.5 MG, QD
     Route: 048
  9. WARFARIN [Concomitant]
     Active Substance: WARFARIN
     Dosage: 1 MG, QD
     Route: 048
  10. ALDACTONE [Concomitant]
     Active Substance: SPIRONOLACTONE
     Dosage: 1 MG, QD
     Route: 048
  11. DENOTAS [Concomitant]
     Active Substance: CALCIUM CARBONATE\CHOLECALCIFEROL\MAGNESIUM CARBONATE
     Dosage: 2 DF, QD
     Route: 048
     Dates: start: 20170419

REACTIONS (2)
  - Blood calcium decreased [Recovering/Resolving]
  - Hypokalaemia [Recovering/Resolving]

NARRATIVE: CASE EVENT DATE: 20170426
